FAERS Safety Report 4294914-3 (Version None)
Quarter: 2004Q1

REPORT INFORMATION
  Report Type: 
  Country: None (occurrence: None)
  Receive Date: 20040216
  Receipt Date: 20030221
  Transmission Date: 20041129
  Serious: No
  Sender: FDA-Public Use
  Company Number: US-GLAXOSMITHKLINE-A0397767A

PATIENT
  Age: 57 Year
  Sex: Female

DRUGS (3)
  1. LAMICTAL [Suspect]
     Indication: PARTIAL SEIZURES
     Dosage: 350MG TWICE PER DAY
     Route: 048
     Dates: start: 20000101
  2. PREMARIN [Concomitant]
  3. INDERAL [Concomitant]

REACTIONS (3)
  - ASTHENIA [None]
  - BALANCE DISORDER [None]
  - DISTURBANCE IN ATTENTION [None]
